FAERS Safety Report 10064091 (Version 1)
Quarter: 2014Q1

REPORT INFORMATION
  Report Type: Spontaneous
  Country: US (occurrence: None)
  Receive Date: 20140114
  Receipt Date: 20140114
  Transmission Date: 20141002
  Serious: Yes (Life-Threatening)
  Sender: FDA-Public Use
  Company Number: 2011000431

PATIENT
  Age: 61 Year
  Sex: Female
  Weight: 74 kg

DRUGS (3)
  1. TARCEVA (ERLOTINIB HYDROCHLORIDE) TABLET [Suspect]
     Indication: OVARIAN CANCER
     Dosage: UID
     Route: 048
     Dates: start: 20110103
  2. VISMODEGIB (VISMODEGIB) [Suspect]
     Indication: OVARIAN CANCER
     Dosage: UID
     Route: 048
     Dates: start: 20110103, end: 20110117
  3. GEMCITABINE (GEMCITABINE) [Suspect]
     Indication: OVARIAN CANCER
     Dosage: NOS
     Route: 042
     Dates: start: 20110103, end: 20110110

REACTIONS (2)
  - Thrombocytopenia [None]
  - Off label use [None]
